FAERS Safety Report 15923945 (Version 1)
Quarter: 2019Q1

REPORT INFORMATION
  Report Type: Spontaneous
  Country: US (occurrence: US)
  Receive Date: 20190115
  Receipt Date: 20190115
  Transmission Date: 20190417
  Serious: Yes (Other)
  Sender: FDA-Public Use
  Company Number: None

PATIENT
  Age: 84 Year
  Sex: Female

DRUGS (11)
  1. LISINOPRIL. [Concomitant]
     Active Substance: LISINOPRIL
  2. FLONASE [Concomitant]
     Active Substance: FLUTICASONE PROPIONATE
  3. RED YEAST RICE [Concomitant]
     Active Substance: DIETARY SUPPLEMENT
  4. OMEGA 3-6-9 [Concomitant]
     Active Substance: FISH OIL
  5. BISOPROLOL FUMARATE. [Concomitant]
     Active Substance: BISOPROLOL FUMARATE
  6. LEVOTHYROXINE. [Concomitant]
     Active Substance: LEVOTHYROXINE
  7. XALATAN [Concomitant]
     Active Substance: LATANOPROST
  8. BABY ASPIRIN [Concomitant]
     Active Substance: ASPIRIN
  9. AZO [Concomitant]
     Active Substance: PHENAZOPYRIDINE HYDROCHLORIDE
  10. AMLODOPINE [Concomitant]
     Active Substance: AMLODIPINE BESYLATE
  11. RISEDRONATE SODIUM 150MG TABLET-GENERIC FOR ACTONEL [Suspect]
     Active Substance: RISEDRONATE SODIUM
     Indication: OSTEOPOROSIS
     Dosage: ?          QUANTITY:150 MG MILLIGRAM(S); PILL PER MONTH
     Route: 048
     Dates: start: 20181226, end: 20181226

REACTIONS (6)
  - Pain in extremity [None]
  - Muscle spasms [None]
  - Insomnia [None]
  - Muscular weakness [None]
  - Back pain [None]
  - Bone pain [None]

NARRATIVE: CASE EVENT DATE: 20181226
